FAERS Safety Report 25723104 (Version 1)
Quarter: 2025Q3

REPORT INFORMATION
  Report Type: Spontaneous
  Country: GB (occurrence: GB)
  Receive Date: 20250825
  Receipt Date: 20250825
  Transmission Date: 20251021
  Serious: Yes (Other)
  Sender: PFIZER
  Company Number: None

PATIENT
  Age: 75 Year
  Sex: Male

DRUGS (1)
  1. BEVACIZUMAB [Suspect]
     Active Substance: BEVACIZUMAB
     Indication: Brain neoplasm malignant

REACTIONS (6)
  - Contusion [Unknown]
  - Fatigue [Unknown]
  - Rash [Unknown]
  - Increased tendency to bruise [Unknown]
  - Skin fragility [Unknown]
  - Off label use [Unknown]

NARRATIVE: CASE EVENT DATE: 20250819
